FAERS Safety Report 9704667 (Version 2)
Quarter: 2014Q1

REPORT INFORMATION
  Report Type: Spontaneous
  Country: US (occurrence: US)
  Receive Date: 20131122
  Receipt Date: 20140103
  Transmission Date: 20141002
  Serious: No
  Sender: FDA-Public Use
  Company Number: US-PFIZER INC-2013333294

PATIENT
  Age: 52 Year
  Sex: Female

DRUGS (8)
  1. XELJANZ [Suspect]
     Indication: RHEUMATOID ARTHRITIS
     Dosage: 5 MG, 2X/DAY
     Route: 048
     Dates: start: 201307
  2. XELJANZ [Suspect]
     Dosage: 5 MG, 2X/DAY
     Route: 048
     Dates: start: 201307, end: 20131126
  3. CYMBALTA [Concomitant]
     Dosage: 30 MG
  4. SYNTHROID [Concomitant]
     Dosage: 125 UG
  5. FOLIC ACID [Concomitant]
     Dosage: 1 MG
  6. LISINOPRIL [Concomitant]
     Dosage: 5 MG
  7. PRILOSEC [Concomitant]
     Dosage: 20 MG
  8. MOBIC [Concomitant]
     Dosage: 7.5 MG

REACTIONS (5)
  - Dizziness [Unknown]
  - Rash [Unknown]
  - Pain [Not Recovered/Not Resolved]
  - Fatigue [Not Recovered/Not Resolved]
  - Irritability [Not Recovered/Not Resolved]
